FAERS Safety Report 6013784-6 (Version None)
Quarter: 2008Q4

REPORT INFORMATION
  Report Type: 
  Country: None (occurrence: None)
  Receive Date: 20081218
  Receipt Date: 20081218
  Transmission Date: 20090506
  Serious: Yes (Life-Threatening)
  Sender: FDA-Public Use
  Company Number: None

PATIENT
  Sex: Female
  Weight: 81.1939 kg

DRUGS (15)
  1. ENALAPRIL MALEATE [Suspect]
     Indication: DIABETES MELLITUS
     Dosage: 2.5 MG DAILY PO
     Route: 048
  2. ENALAPRIL MALEATE [Suspect]
     Indication: HYPERTENSION
     Dosage: 2.5 MG DAILY PO
     Route: 048
  3. LOPID [Concomitant]
  4. OMEPRAZOLE [Concomitant]
  5. QUETIAPINE FUMARATE [Suspect]
  6. COMBIVENT [Concomitant]
  7. ALBUTEROL [Concomitant]
  8. BISACODYL [Concomitant]
  9. CLONIDINE [Concomitant]
  10. DEPAKOTE [Concomitant]
  11. ESCITALOPRAM [Concomitant]
  12. METHOCARBAMOL [Concomitant]
  13. NAPROXEN [Concomitant]
  14. CLONAZEPAM [Concomitant]
  15. VICODIN [Concomitant]

REACTIONS (6)
  - ANGIOEDEMA [None]
  - COUGH [None]
  - DYSPNOEA [None]
  - OEDEMA PERIPHERAL [None]
  - PAIN [None]
  - PITTING OEDEMA [None]
